FAERS Safety Report 22397427 (Version 1)
Quarter: 2023Q2

REPORT INFORMATION
  Report Type: Report from Study
  Country: US (occurrence: US)
  Receive Date: 20230602
  Receipt Date: 20230602
  Transmission Date: 20230722
  Serious: No
  Sender: FDA-Public Use
  Company Number: US-ACADIA PHARMACEUTICALS INC.-ACA-2023-TRF-001809

PATIENT
  Age: 13 Year
  Sex: Female

DRUGS (1)
  1. DAYBUE [Suspect]
     Active Substance: TROFINETIDE
     Indication: Rett syndrome
     Dosage: 15 MILLIGRAM, VIA GASTROSTOMY TUBE
     Dates: start: 20230505

REACTIONS (2)
  - Sinusitis [Unknown]
  - Underdose [Unknown]

NARRATIVE: CASE EVENT DATE: 20230505
